FAERS Safety Report 5533926-6 (Version None)
Quarter: 2007Q4

REPORT INFORMATION
  Report Type: 
  Country: None (occurrence: None)
  Receive Date: 20071129
  Receipt Date: 20071115
  Transmission Date: 20080405
  Serious: Yes (Disabling, Other)
  Sender: FDA-Public Use
  Company Number: 2007AL004928

PATIENT
  Age: 55 Year
  Sex: Female

DRUGS (9)
  1. RANITIDINE [Suspect]
     Indication: GASTROOESOPHAGEAL REFLUX DISEASE
     Dosage: 300 MG; QD; PO
     Route: 048
     Dates: start: 20070921, end: 20071016
  2. SUMATRIPTAN SUCCINATE [Concomitant]
  3. OMEPRAZOLE [Concomitant]
  4. LANSOPRAZOLE [Concomitant]
  5. AMOXICILLIN [Concomitant]
  6. CO-DYDRAMOL [Concomitant]
  7. DICLOFENAC [Concomitant]
  8. ELLESTE DUET [Concomitant]
  9. ZOCOR [Concomitant]

REACTIONS (4)
  - CHEST DISCOMFORT [None]
  - DEPRESSED MOOD [None]
  - DYSPNOEA [None]
  - FATIGUE [None]
